FAERS Safety Report 15951841 (Version 1)
Quarter: 2019Q1

REPORT INFORMATION
  Report Type: Spontaneous
  Country: US (occurrence: US)
  Receive Date: 20190211
  Receipt Date: 20190211
  Transmission Date: 20190417
  Serious: No
  Sender: FDA-Public Use
  Company Number: PHEH2019US005395

PATIENT
  Sex: Female

DRUGS (1)
  1. POLY B SULFATE/TRIMETHOPRIM [Suspect]
     Active Substance: POLYMYXIN B SULFATE\TRIMETHOPRIM
     Indication: CONJUNCTIVITIS
     Route: 065

REACTIONS (2)
  - Eye discharge [Unknown]
  - Eye pruritus [Unknown]
